FAERS Safety Report 11003083 (Version 1)
Quarter: 2015Q2

REPORT INFORMATION
  Report Type: Spontaneous
  Country: FR (occurrence: FR)
  Receive Date: 20150409
  Receipt Date: 20150409
  Transmission Date: 20150821
  Serious: Yes (Other)
  Sender: FDA-Public Use
  Company Number: ALCN2015FR002187

PATIENT
  Sex: Male

DRUGS (12)
  1. MIMPARA [Concomitant]
     Active Substance: CINACALCET HYDROCHLORIDE
     Dosage: UNK
  2. PROGRAF [Concomitant]
     Active Substance: TACROLIMUS\TACROLIMUS ANHYDROUS
     Dosage: UNK
  3. LASILIX [Concomitant]
     Active Substance: FUROSEMIDE
     Dosage: UNK
  4. METEOXANE                          /01772101/ [Concomitant]
     Dosage: UNK
  5. XATRAL [Concomitant]
     Active Substance: ALFUZOSIN
     Dosage: UNK
  6. UVEDOSE [Concomitant]
     Active Substance: CHOLECALCIFEROL
     Dosage: UNK
  7. AMLOR [Concomitant]
     Active Substance: AMLODIPINE BESYLATE
     Dosage: UNK
  8. MIRCERA [Concomitant]
     Active Substance: METHOXY POLYETHYLENE GLYCOL-EPOETIN BETA
     Dosage: UNK
  9. XALACOM [Suspect]
     Active Substance: LATANOPROST\TIMOLOL MALEATE
     Dosage: UNK
  10. AZOPT [Suspect]
     Active Substance: BRINZOLAMIDE
     Dosage: UNK
     Route: 047
  11. TARDYFERON [Concomitant]
     Active Substance: FERROUS SULFATE\FOLIC ACID
     Dosage: UNK
  12. HYDROCORTISONE. [Concomitant]
     Active Substance: HYDROCORTISONE
     Dosage: UNK

REACTIONS (1)
  - Blood creatinine increased [Unknown]
